FAERS Safety Report 5059661-9 (Version None)
Quarter: 2006Q3

REPORT INFORMATION
  Report Type: 
  Country: None (occurrence: None)
  Receive Date: 20060724
  Receipt Date: 20051206
  Transmission Date: 20061208
  Serious: Yes (Other)
  Sender: FDA-Public Use
  Company Number: US-ROCHE-427599

PATIENT
  Age: 45 Year
  Sex: Female
  Weight: 74.8 kg

DRUGS (7)
  1. PEG-INTERFERON ALFA 2A (RO 25-8310) [Suspect]
     Route: 058
     Dates: start: 20050907
  2. RIBAVIRIN [Suspect]
     Route: 048
     Dates: start: 20050907
  3. TRIAMCINOLON ACETONID [Concomitant]
  4. DIUREX [Concomitant]
  5. LORATADINE [Concomitant]
  6. DICYCLOMINE [Concomitant]
  7. PREVACID [Concomitant]

REACTIONS (3)
  - ANAEMIA [None]
  - DEHYDRATION [None]
  - PANCREATIC MASS [None]
